FAERS Safety Report 7877439-5 (Version None)
Quarter: 2011Q4

REPORT INFORMATION
  Report Type: 
  Country: None (occurrence: None)
  Receive Date: 20111031
  Receipt Date: 20111020
  Transmission Date: 20120403
  Serious: Yes (Other)
  Sender: FDA-Public Use
  Company Number: US-ASTRAZENECA-2011SE63508

PATIENT
  Age: 57 Year
  Sex: Female
  Weight: 63.5 kg

DRUGS (1)
  1. NEXIUM [Suspect]
     Route: 048

REACTIONS (10)
  - ABASIA [None]
  - LOWER LIMB FRACTURE [None]
  - FEMUR FRACTURE [None]
  - DRUG DOSE OMISSION [None]
  - MUSCULOSKELETAL DISCOMFORT [None]
  - DYSPEPSIA [None]
  - FEELING ABNORMAL [None]
  - ARTHRITIS [None]
  - GASTROOESOPHAGEAL REFLUX DISEASE [None]
  - RHEUMATOID ARTHRITIS [None]
